FAERS Safety Report 6401951-9 (Version None)
Quarter: 2009Q4

REPORT INFORMATION
  Report Type: 
  Country: None (occurrence: None)
  Receive Date: 20091015
  Receipt Date: 20091012
  Transmission Date: 20100525
  Serious: Yes (Hospitalization)
  Sender: FDA-Public Use
  Company Number: A0811662A

PATIENT
  Sex: Male

DRUGS (1)
  1. FLONASE [Suspect]
     Dosage: 50MCG UNKNOWN
     Route: 045

REACTIONS (3)
  - LIFE SUPPORT [None]
  - MECHANICAL VENTILATION [None]
  - TRACHEAL DISORDER [None]
